FAERS Safety Report 9503305 (Version 1)
Quarter: 2013Q3

REPORT INFORMATION
  Report Type: Spontaneous
  Country: US (occurrence: US)
  Receive Date: 20130906
  Receipt Date: 20130906
  Transmission Date: 20140515
  Serious: No
  Sender: FDA-Public Use
  Company Number: US-BAUSCH-BL-2013-004102

PATIENT
  Age: 61 Year
  Sex: Female

DRUGS (1)
  1. NEOMYCIN AND POLYMYXIN B SULFATES AND DEXAMETHASONE OPHTHALMIC OINTMEN [Suspect]
     Indication: ANTIBIOTIC PROPHYLAXIS
     Dosage: 1 RIBBON; TWICE DAILY; RIGHT EYE
     Route: 047
     Dates: start: 20130626, end: 20130703

REACTIONS (2)
  - Off label use [Recovered/Resolved]
  - Foreign body sensation in eyes [Recovered/Resolved]
